FAERS Safety Report 7565664-2 (Version None)
Quarter: 2011Q2

REPORT INFORMATION
  Report Type: 
  Country: None (occurrence: None)
  Receive Date: 20110616
  Receipt Date: 20110606
  Transmission Date: 20111010
  Serious: Yes (Hospitalization)
  Sender: FDA-Public Use
  Company Number: 2011P1007018

PATIENT
  Age: 85 Year
  Sex: Male

DRUGS (16)
  1. THEOPHYLLINE [Concomitant]
  2. ONDANSETRON [Concomitant]
  3. GUAIFENESIN WITH CODEINE COUGH SYRUP [Concomitant]
  4. LISINOPRIL [Suspect]
     Dosage: 40 MG, QD, PO
     Route: 048
  5. METFORMIN HCL [Concomitant]
  6. LIDOCAINE [Concomitant]
  7. PRAMIPEXOLE DIHYDROCHLORIDE [Concomitant]
  8. DICLOFENAC TOPICAL GEL [Concomitant]
  9. ACETAMINOPHEN [Concomitant]
  10. FINASTERIDE [Concomitant]
  11. HYDROCODONE BITARTRATE AND ACETAMINOPHEN [Concomitant]
  12. CITALOPRAM HYDROBROMIDE [Concomitant]
  13. TIZANIDINE HYDROCHLORIDE [Suspect]
     Indication: PAIN
     Dosage: 2 MG, Q8H, PO
     Route: 048
  14. CHLORPROMAZINE [Concomitant]
  15. OMEPRAZOLE [Concomitant]
  16. SIMVASTATIN [Concomitant]

REACTIONS (7)
  - BLOOD CREATININE INCREASED [None]
  - BLOOD UREA INCREASED [None]
  - BLOOD POTASSIUM INCREASED [None]
  - HYPOTENSION [None]
  - BLOOD SODIUM DECREASED [None]
  - DISORIENTATION [None]
  - SINUS BRADYCARDIA [None]
